FAERS Safety Report 7616668-2 (Version None)
Quarter: 2011Q3

REPORT INFORMATION
  Report Type: 
  Country: None (occurrence: None)
  Receive Date: 20110717
  Receipt Date: 20110704
  Transmission Date: 20111222
  Serious: Yes (Life-Threatening, Hospitalization, Other)
  Sender: FDA-Public Use
  Company Number: MX-SANOFI-AVENTIS-2011SA042498

PATIENT
  Age: 63 Year
  Sex: Female
  Weight: 98 kg

DRUGS (6)
  1. HUMALOG [Concomitant]
     Indication: TYPE 2 DIABETES MELLITUS
     Route: 058
     Dates: start: 20110514
  2. LANTUS [Suspect]
     Route: 058
     Dates: start: 20110514
  3. JANUVIA [Concomitant]
     Indication: TYPE 2 DIABETES MELLITUS
     Route: 048
     Dates: start: 20090101
  4. LEVOTHYROXINE SODIUM [Concomitant]
     Indication: HYPOTHYROIDISM
     Route: 058
     Dates: start: 20110514
  5. LANTUS [Suspect]
     Route: 058
     Dates: start: 20090101, end: 20110514
  6. AMARYL [Suspect]
     Route: 048
     Dates: start: 20090101, end: 20110514

REACTIONS (11)
  - HYPERGLYCAEMIA [None]
  - CHRONIC OBSTRUCTIVE PULMONARY DISEASE [None]
  - MYXOEDEMA [None]
  - RENAL FAILURE CHRONIC [None]
  - LOSS OF CONSCIOUSNESS [None]
  - STUPOR [None]
  - BRADYPHRENIA [None]
  - HYPOTHYROIDISM [None]
  - LEFT VENTRICULAR HYPERTROPHY [None]
  - SOMNOLENCE [None]
  - SPEECH DISORDER DEVELOPMENTAL [None]
